FAERS Safety Report 10466266 (Version 1)
Quarter: 2014Q3

REPORT INFORMATION
  Report Type: Spontaneous
  Country: US (occurrence: None)
  Receive Date: 20140918
  Receipt Date: 20140918
  Transmission Date: 20150326
  Serious: Yes (Hospitalization, Other)
  Sender: FDA-Public Use
  Company Number: 2009S1006471

PATIENT
  Age: 78 Year
  Sex: Female
  Weight: 57 kg

DRUGS (6)
  1. NORVASC [Concomitant]
     Active Substance: AMLODIPINE BESYLATE
  2. HYDROCHLOROTHIAZIDE. [Concomitant]
     Active Substance: HYDROCHLOROTHIAZIDE
  3. ATACAND [Concomitant]
     Active Substance: CANDESARTAN CILEXETIL
  4. PHOSPHO-SODA [Suspect]
     Active Substance: SODIUM PHOSPHATE, DIBASIC\SODIUM PHOSPHATE, MONOBASIC
     Indication: COLONOSCOPY
     Route: 048
     Dates: start: 20030813, end: 20030813
  5. LIPITOR [Concomitant]
     Active Substance: ATORVASTATIN CALCIUM
  6. EVISTA [Concomitant]
     Active Substance: RALOXIFENE HYDROCHLORIDE

REACTIONS (16)
  - Renal failure chronic [None]
  - Hyponatraemia [None]
  - Dizziness [None]
  - Metabolic acidosis [None]
  - Asthenia [None]
  - Fluid retention [None]
  - Hypokalaemia [None]
  - Hypertension [None]
  - Dehydration [None]
  - Renal failure acute [None]
  - Renal tubular necrosis [None]
  - Decreased appetite [None]
  - Hyperphosphataemia [None]
  - Acute phosphate nephropathy [None]
  - Diarrhoea [None]
  - Hyperparathyroidism secondary [None]

NARRATIVE: CASE EVENT DATE: 20030816
